FAERS Safety Report 5574775-2 (Version None)
Quarter: 2007Q4

REPORT INFORMATION
  Report Type: 
  Country: None (occurrence: None)
  Receive Date: 20071227
  Receipt Date: 20071219
  Transmission Date: 20080405
  Serious: Yes (Hospitalization, Disabling)
  Sender: FDA-Public Use
  Company Number: JP-MERCK-0712USA05279

PATIENT
  Age: 66 Year
  Sex: Male

DRUGS (6)
  1. PEPCID [Suspect]
     Indication: GASTRITIS
     Route: 048
     Dates: start: 20070704, end: 20070724
  2. PEPCID [Suspect]
     Route: 048
     Dates: start: 20070801, end: 20071203
  3. UFT [Suspect]
     Indication: LUNG NEOPLASM MALIGNANT
     Route: 048
     Dates: start: 20070801, end: 20071129
  4. NORVASC [Concomitant]
     Route: 048
     Dates: start: 19910101, end: 20071203
  5. LIPITOR [Concomitant]
     Route: 048
     Dates: start: 19910101, end: 20071203
  6. TANATRIL [Concomitant]
     Route: 048
     Dates: start: 19910101, end: 20071203

REACTIONS (3)
  - ALLERGIC TRANSFUSION REACTION [None]
  - DERMATITIS ALLERGIC [None]
  - IDIOPATHIC THROMBOCYTOPENIC PURPURA [None]
